FAERS Safety Report 6308213-9 (Version None)
Quarter: 2009Q3

REPORT INFORMATION
  Report Type: 
  Country: None (occurrence: None)
  Receive Date: 20090813
  Receipt Date: 20090804
  Transmission Date: 20100115
  Serious: Yes (Hospitalization)
  Sender: FDA-Public Use
  Company Number: FR-PFIZER INC-2009249778

PATIENT
  Age: 67 Year

DRUGS (10)
  1. DALACINE [Suspect]
     Dosage: 600 MG, 4X/DAY
     Route: 048
     Dates: start: 20090415
  2. DALACINE [Suspect]
     Dosage: 600 MG, 3X/DAY
     Route: 048
     Dates: end: 20090626
  3. FUCIDINE CAP [Suspect]
     Dosage: 500 MG, 3X/DAY
     Route: 048
     Dates: start: 20090512, end: 20090626
  4. LODOZ [Suspect]
     Dosage: UNK
     Dates: start: 20090609, end: 20090626
  5. NEXIUM [Suspect]
     Dosage: 20 MG, UNK
     Route: 048
     Dates: start: 20090609
  6. TENORDATE [Concomitant]
     Dosage: UNK
     Dates: start: 20090401
  7. VOLTAREN [Concomitant]
     Dosage: UNK
     Dates: start: 20090401
  8. OMEPRAZOLE [Concomitant]
     Dosage: UNK
     Dates: start: 20090401
  9. INNOHEP [Concomitant]
     Dosage: UNK
     Dates: start: 20090401
  10. TRAMADOL HYDROCHLORIDE AND ACETAMINOPHEN [Concomitant]
     Dosage: UNK
     Dates: start: 20090609

REACTIONS (4)
  - CYTOLYTIC HEPATITIS [None]
  - INFLAMMATION [None]
  - RENAL FAILURE ACUTE [None]
  - RHABDOMYOLYSIS [None]
